FAERS Safety Report 15153936 (Version 9)
Quarter: 2019Q2

REPORT INFORMATION
  Report Type: Report from Study
  Country: CO (occurrence: CO)
  Receive Date: 20180717
  Receipt Date: 20190605
  Transmission Date: 20190711
  Serious: Yes (Death, Hospitalization, Other)
  Sender: FDA-Public Use
  Company Number: PHHY2018CO044159

PATIENT
  Age: 55 Year
  Sex: Female
  Weight: 73 kg

DRUGS (7)
  1. MEKINIST [Suspect]
     Active Substance: TRAMETINIB DIMETHYL SULFOXIDE
     Indication: METASTATIC MALIGNANT MELANOMA
     Dosage: 2 MG, QD
     Route: 048
     Dates: start: 20180531, end: 201901
  2. ACETAMINOPHEN. [Suspect]
     Active Substance: ACETAMINOPHEN
     Indication: INFLAMMATION
  3. ACETAMINOPHEN. [Suspect]
     Active Substance: ACETAMINOPHEN
     Indication: PAIN IN EXTREMITY
     Dosage: 800 MG, UNK
     Route: 065
  4. ENALAPRIL [Concomitant]
     Active Substance: ENALAPRIL
     Indication: HYPERTENSION
     Dosage: 20 MG, Q12H
     Route: 048
  5. HYDROCHLOROTHIAZIDE. [Concomitant]
     Active Substance: HYDROCHLOROTHIAZIDE
     Indication: FLUID RETENTION
     Dosage: 25 MG, QD
     Route: 048
  6. ENALAPRIL [Concomitant]
     Active Substance: ENALAPRIL
     Dosage: 20 MG, QD
     Route: 065
  7. TAFINLAR [Suspect]
     Active Substance: DABRAFENIB MESYLATE
     Indication: METASTATIC MALIGNANT MELANOMA
     Dosage: 150 MG, QD
     Route: 048
     Dates: start: 20180531, end: 201901

REACTIONS (23)
  - Decreased appetite [Unknown]
  - Mobility decreased [Unknown]
  - Haemorrhage [Unknown]
  - Metastases to stomach [Unknown]
  - Eating disorder [Unknown]
  - Haemoglobin decreased [Recovering/Resolving]
  - Metastases to lung [Unknown]
  - Inappropriate schedule of product administration [Unknown]
  - Concomitant disease aggravated [Unknown]
  - Metastases to kidney [Unknown]
  - Respiratory failure [Recovering/Resolving]
  - Peripheral swelling [Unknown]
  - Night sweats [Unknown]
  - Pain in extremity [Recovering/Resolving]
  - Pulmonary embolism [Recovering/Resolving]
  - Anaemia [Unknown]
  - Ulcer [Unknown]
  - Metastatic malignant melanoma [Unknown]
  - Death [Fatal]
  - Inflammation [Unknown]
  - Malignant neoplasm progression [Unknown]
  - Axillary pain [Unknown]
  - Drug hypersensitivity [Unknown]

NARRATIVE: CASE EVENT DATE: 201812
